FAERS Safety Report 9636181 (Version 1)
Quarter: 2013Q4

REPORT INFORMATION
  Report Type: Spontaneous
  Country: BR (occurrence: BR)
  Receive Date: 20131021
  Receipt Date: 20131021
  Transmission Date: 20140711
  Serious: No
  Sender: FDA-Public Use
  Company Number: BR-B.I. PHARMACEUTICALS,INC./RIDGEFIELD-2013-BI-32120BR

PATIENT
  Age: 69 Year
  Sex: Female
  Weight: 76 kg

DRUGS (5)
  1. TRAYENTA [Suspect]
     Indication: DIABETES MELLITUS
     Dosage: 5 MG
     Route: 048
     Dates: start: 20130924, end: 20131007
  2. LOSARTANA [Concomitant]
     Indication: HYPERTENSION
     Dosage: 100 MG
     Route: 048
     Dates: start: 2001
  3. OMEPRAZOL [Concomitant]
     Indication: DYSPEPSIA
     Route: 048
     Dates: start: 2006
  4. AZUCON [Concomitant]
     Indication: DIABETES MELLITUS
     Route: 048
     Dates: start: 201306
  5. TOPIRAMAX [Concomitant]
     Indication: ANXIETY
     Route: 048
     Dates: start: 201308

REACTIONS (5)
  - Lip swelling [Not Recovered/Not Resolved]
  - Swollen tongue [Not Recovered/Not Resolved]
  - Paraesthesia oral [Not Recovered/Not Resolved]
  - Dysphagia [Not Recovered/Not Resolved]
  - Dry mouth [Not Recovered/Not Resolved]
